FAERS Safety Report 11336444 (Version 1)
Quarter: 2015Q3

REPORT INFORMATION
  Report Type: Report from Study
  Country: ES (occurrence: ES)
  Receive Date: 20150804
  Receipt Date: 20150804
  Transmission Date: 20151125
  Serious: Yes (Life-Threatening, Hospitalization, Other)
  Sender: FDA-Public Use
  Company Number: ES-VIIV HEALTHCARE LIMITED-ES2014GSK054607

PATIENT
  Age: 45 Year
  Sex: Female
  Weight: 52 kg

DRUGS (7)
  1. MARAVIROC [Suspect]
     Active Substance: MARAVIROC
     Indication: HIV INFECTION
     Dosage: 600 MG, QD
     Dates: start: 20130313
  2. ABACAVIR. [Suspect]
     Active Substance: ABACAVIR
     Dosage: UNK
     Route: 048
     Dates: start: 20130608
  3. RALTEGRAVIR. [Concomitant]
     Active Substance: RALTEGRAVIR
     Dosage: 800 MG, QD
     Dates: start: 20130313
  4. ABACAVIR. [Suspect]
     Active Substance: ABACAVIR
     Dosage: 600 MG, QD
     Dates: start: 20130313
  5. MARAVIROC [Suspect]
     Active Substance: MARAVIROC
     Dosage: UNK
  6. ESLICARBAZEPINE [Suspect]
     Active Substance: ESLICARBAZEPINE
     Indication: DRUG ABUSE
     Dosage: UNK
     Dates: start: 20130608
  7. DICLOFENAC [Suspect]
     Active Substance: DICLOFENAC
     Dosage: UNK
     Route: 048
     Dates: start: 20130608

REACTIONS (1)
  - Suicide attempt [Recovered/Resolved]

NARRATIVE: CASE EVENT DATE: 20130608
